FAERS Safety Report 18215156 (Version 2)
Quarter: 2020Q3

REPORT INFORMATION
  Report Type: Spontaneous
  Country: US (occurrence: US)
  Receive Date: 20200831
  Receipt Date: 20200904
  Transmission Date: 20201103
  Serious: Yes (Hospitalization, Other)
  Sender: FDA-Public Use
  Company Number: US-009507513-2008USA012495

PATIENT
  Age: 28 Year
  Sex: Female
  Weight: 66.67 kg

DRUGS (2)
  1. DOCETAXEL. [Suspect]
     Active Substance: DOCETAXEL
     Dosage: 75 MG/M2
     Dates: start: 20200717
  2. KEYTRUDA [Suspect]
     Active Substance: PEMBROLIZUMAB
     Dosage: 200 MILLIGRAM
     Dates: start: 20200717

REACTIONS (7)
  - Pneumonia [Unknown]
  - COVID-19 [Unknown]
  - Oxygen saturation decreased [Unknown]
  - Pleural effusion [Unknown]
  - Pneumonitis [Unknown]
  - Infection [Unknown]
  - Lung opacity [Unknown]

NARRATIVE: CASE EVENT DATE: 20200821
